FAERS Safety Report 16926989 (Version 1)
Quarter: 2019Q4

REPORT INFORMATION
  Report Type: Spontaneous
  Country: JP (occurrence: JP)
  Receive Date: 20191016
  Receipt Date: 20191016
  Transmission Date: 20200122
  Serious: Yes (Hospitalization)
  Sender: FDA-Public Use
  Company Number: JP-JNJFOC-20191022023

PATIENT
  Age: 66 Year
  Sex: Male

DRUGS (5)
  1. MICARDIS [Concomitant]
     Active Substance: TELMISARTAN
     Dosage: 40 MILLIGRAM, QD
     Route: 048
     Dates: end: 20190313
  2. ADALAT [Concomitant]
     Active Substance: NIFEDIPINE
     Dosage: 20 MILLIGRAM, QD
     Route: 048
     Dates: start: 201306, end: 20190313
  3. CRESTOR [Concomitant]
     Active Substance: ROSUVASTATIN CALCIUM
     Dosage: 2.5 MILLIGRAM, QD
     Route: 048
     Dates: end: 20190313
  4. CANAGLIFLOZIN [Suspect]
     Active Substance: CANAGLIFLOZIN
     Indication: TYPE 2 DIABETES MELLITUS
     Dosage: 100 MILLIGRAM, QD
     Route: 048
     Dates: start: 20160909, end: 20190313
  5. LIOVEL [Concomitant]
     Active Substance: ALOGLIPTIN BENZOATE\PIOGLITAZONE HYDROCHLORIDE
     Indication: TYPE 2 DIABETES MELLITUS
     Dosage: 1 DOSAGE FORM, QD
     Route: 048
     Dates: start: 201306, end: 20190313

REACTIONS (1)
  - Embolic stroke [Recovered/Resolved with Sequelae]

NARRATIVE: CASE EVENT DATE: 20190313
